FAERS Safety Report 18273349 (Version 1)
Quarter: 2020Q3

REPORT INFORMATION
  Report Type: Spontaneous
  Country: US (occurrence: US)
  Receive Date: 20200916
  Receipt Date: 20200916
  Transmission Date: 20201103
  Serious: Yes (Hospitalization)
  Sender: FDA-Public Use
  Company Number: None

PATIENT
  Sex: Male

DRUGS (4)
  1. BUSPIRONE, GABAPENTIN, ALPRAZOLAM, ESOMEPRA, OXYBUTYNIN, TRAZODONE [Concomitant]
  2. HUMIRA [Suspect]
     Active Substance: ADALIMUMAB
     Indication: RHEUMATOID ARTHRITIS
     Dosage: ?          OTHER FREQUENCY:EVERY OTHER WEEK;?
     Route: 059
     Dates: start: 20190523
  3. INCRUSE, FLUTICASONE, ALBUTEROL, AMITRIPTYLINE, OXYCODONE [Concomitant]
  4. MORPHINE SULFATE, ALENDRONATE, VITAMIN D, METOPROLOL SUCCINATE [Concomitant]

REACTIONS (2)
  - Arthralgia [None]
  - Antibiotic therapy [None]
